FAERS Safety Report 7653014-2 (Version None)
Quarter: 2011Q3

REPORT INFORMATION
  Report Type: 
  Country: None (occurrence: None)
  Receive Date: 20110728
  Receipt Date: 20110715
  Transmission Date: 20111222
  Serious: Yes (Other)
  Sender: FDA-Public Use
  Company Number: OMPQ-NO-1107S-0723

PATIENT
  Age: 66 Year
  Sex: Male

DRUGS (6)
  1. GASMOTRIN (MOSAPRIDE CITRATE) [Concomitant]
  2. OMNIPAQUE 70 [Suspect]
     Indication: PRODUCT USED FOR UNKNOWN INDICATION
     Dosage: 150 ML, SINGLE DOSE, INTRAVENOUS, NR, SINGLE DOSE, EXTRAVASATION
     Route: 042
     Dates: start: 20110430, end: 20110430
  3. OMNIPAQUE 70 [Suspect]
     Indication: PRODUCT USED FOR UNKNOWN INDICATION
     Dosage: 150 ML, SINGLE DOSE, INTRAVENOUS, NR, SINGLE DOSE, EXTRAVASATION
     Route: 042
     Dates: start: 20110430, end: 20110430
  4. OMEPRAZOLE (OMEPRAL) (OMEPRAZOLE) [Concomitant]
  5. WARFARIN SODIUM [Concomitant]
  6. SUCRALFATE [Concomitant]

REACTIONS (2)
  - INJECTION SITE EXTRAVASATION [None]
  - OEDEMA PERIPHERAL [None]
